FAERS Safety Report 15657008 (Version 2)
Quarter: 2018Q4

REPORT INFORMATION
  Report Type: Spontaneous
  Country: DE (occurrence: DE)
  Receive Date: 20181126
  Receipt Date: 20181205
  Transmission Date: 20190205
  Serious: Yes (Hospitalization)
  Sender: FDA-Public Use
  Company Number: DE-SANIK-2018SA150255AA

PATIENT
  Age: 72 Year
  Sex: Female

DRUGS (6)
  1. TORASEMID [Concomitant]
     Active Substance: TORSEMIDE
     Dosage: 10 MG, 0.5-0.5-0-0
  2. LISIBETA COMP [Concomitant]
     Dosage: 20|12.5 MG, 1-0-0-0
  3. TRIMIPRAMINE [Concomitant]
     Active Substance: TRIMIPRAMINE
     Dosage: 100 MG, 0-0-0-1
  4. PANTOPRAZOLE [Concomitant]
     Active Substance: PANTOPRAZOLE
     Dosage: 40 MG, 1-0-0-0
  5. LIORESAL [Concomitant]
     Active Substance: BACLOFEN
  6. CLOPIDOGREL BISULFATE. [Suspect]
     Active Substance: CLOPIDOGREL BISULFATE
     Dosage: 75 MG, 1-0-0-0
     Route: 065

REACTIONS (2)
  - Fatigue [Unknown]
  - General physical health deterioration [Unknown]
